FAERS Safety Report 24996203 (Version 2)
Quarter: 2025Q1

REPORT INFORMATION
  Report Type: Report from Study
  Country: US (occurrence: US)
  Receive Date: 20250221
  Receipt Date: 20250324
  Transmission Date: 20250408
  Serious: Yes (Hospitalization)
  Sender: SECURA BIO
  Company Number: US-SECURA BIO, INC.-SECUR-2025-US001867

PATIENT
  Age: 73 Year
  Sex: Female

DRUGS (2)
  1. DUVELISIB [Suspect]
     Active Substance: DUVELISIB
     Indication: T-cell prolymphocytic leukaemia
     Dates: start: 20230525, end: 20241119
  2. RUXOLITINIB [Suspect]
     Active Substance: RUXOLITINIB
     Indication: T-cell prolymphocytic leukaemia
     Dates: start: 20230525, end: 20241119

REACTIONS (3)
  - Non-cardiac chest pain [Unknown]
  - Diarrhoea [Unknown]
  - Nausea [Unknown]

NARRATIVE: CASE EVENT DATE: 20241120
